FAERS Safety Report 9769636 (Version 2)
Quarter: 2013Q4

REPORT INFORMATION
  Report Type: Spontaneous
  Country: US (occurrence: None)
  Receive Date: 20131216
  Receipt Date: 20131227
  Transmission Date: 20140711
  Serious: Yes (Other)
  Sender: FDA-Public Use
  Company Number: AUR-APL-2013-10447

PATIENT
  Age: 66 Year
  Sex: Male

DRUGS (1)
  1. CIPROFLOXACIN [Suspect]
     Indication: INFECTION
     Dosage: ONE TABLET ORALLY DAILY FOR TEN DOSES (500 MG), ORAL
     Route: 048
     Dates: start: 201306, end: 201306

REACTIONS (3)
  - Paraesthesia [None]
  - Tendon pain [None]
  - Musculoskeletal pain [None]
